FAERS Safety Report 21413647 (Version 1)
Quarter: 2022Q4

REPORT INFORMATION
  Report Type: Spontaneous
  Country: IN (occurrence: IN)
  Receive Date: 20221006
  Receipt Date: 20221006
  Transmission Date: 20230113
  Serious: Yes (Other)
  Sender: FDA-Public Use
  Company Number: IN-IPCA LABORATORIES LIMITED-IPC-2022-IN-001654

PATIENT

DRUGS (2)
  1. METFORMIN [Suspect]
     Active Substance: METFORMIN HYDROCHLORIDE
     Indication: Product used for unknown indication
     Dosage: 8 GRAM
     Route: 048
  2. GLIMEPIRIDE [Suspect]
     Active Substance: GLIMEPIRIDE
     Indication: Product used for unknown indication
     Dosage: 35 MILLIGRAM
     Route: 048

REACTIONS (7)
  - Generalised tonic-clonic seizure [Recovering/Resolving]
  - Hypoxia [Recovering/Resolving]
  - Hypoglycaemia [Recovering/Resolving]
  - Irritability [Recovering/Resolving]
  - Pyrexia [Recovering/Resolving]
  - Somnolence [Recovering/Resolving]
  - Overdose [Unknown]
